FAERS Safety Report 8767513 (Version 1)
Quarter: 2012Q4

REPORT INFORMATION
  Report Type: 
  Country: BR (occurrence: BR)
  Receive Date: 20120904
  Receipt Date: 20120904
  Transmission Date: 20130627
  Serious: Yes (Other)
  Sender: FDA-Public Use
  Company Number: PHHY2012BR076138

PATIENT
  Sex: Female
  Weight: 57 kg

DRUGS (2)
  1. RITALINA [Suspect]
     Dosage: 3 tablets daily (30 mg daily)
     Dates: start: 2008, end: 2009
  2. RITALIN LA [Suspect]
     Indication: ATTENTION DEFICIT/HYPERACTIVITY DISORDER
     Dosage: 30 mg, 1 capsule daily

REACTIONS (5)
  - Subcutaneous haematoma [Recovered/Resolved]
  - Gingival erythema [Recovering/Resolving]
  - Erythema [Recovered/Resolved]
  - Insomnia [Recovered/Resolved]
  - Depressed mood [Recovered/Resolved]
